FAERS Safety Report 6464183-4 (Version None)
Quarter: 2009Q4

REPORT INFORMATION
  Report Type: 
  Country: None (occurrence: None)
  Receive Date: 20091201
  Receipt Date: 20091117
  Transmission Date: 20100525
  Serious: Yes (Hospitalization)
  Sender: FDA-Public Use
  Company Number: PHHY2009FR50802

PATIENT
  Age: 45 Year
  Sex: Female

DRUGS (1)
  1. AREDIA [Suspect]
     Indication: HYPERCALCAEMIA
     Dosage: UNK
     Dates: start: 20090921

REACTIONS (2)
  - PANCYTOPENIA [None]
  - PYREXIA [None]
